FAERS Safety Report 24143793 (Version 1)
Quarter: 2024Q3

REPORT INFORMATION
  Report Type: Spontaneous
  Country: NL (occurrence: NL)
  Receive Date: 20240727
  Receipt Date: 20240727
  Transmission Date: 20241016
  Serious: Yes (Life-Threatening)
  Sender: TEVA
  Company Number: None

PATIENT
  Age: 52 Year
  Sex: Male
  Weight: 84 kg

DRUGS (3)
  1. NAPROXEN [Suspect]
     Active Substance: NAPROXEN
     Indication: Headache
     Dosage: SINGLE USE / BRAND NAME NOT SPECIFIED
     Route: 065
     Dates: start: 20240626, end: 20240626
  2. CLEMASTINE FUMARATE [Concomitant]
     Active Substance: CLEMASTINE FUMARATE
     Indication: Product used for unknown indication
     Dosage: 2 MG IV, INJVLST 1MG/ML AMPOULE 2ML
     Route: 065
  3. DEXAMETHASONE [Concomitant]
     Active Substance: DEXAMETHASONE
     Indication: Product used for unknown indication
     Dosage: 8 MG IV / BRAND NAME NOT SPECIFIED
     Route: 065

REACTIONS (4)
  - Anaphylactic shock [Recovering/Resolving]
  - Pruritus [Unknown]
  - Lip swelling [Unknown]
  - Periorbital swelling [Unknown]
